FAERS Safety Report 7130228-1 (Version None)
Quarter: 2010Q4

REPORT INFORMATION
  Report Type: 
  Country: None (occurrence: None)
  Receive Date: 20101201
  Receipt Date: 20101122
  Transmission Date: 20110411
  Serious: Yes (Hospitalization)
  Sender: FDA-Public Use
  Company Number: GB-JNJFOC-20101006402

PATIENT
  Age: 66 Year
  Sex: Female

DRUGS (3)
  1. RISPERIDONE [Suspect]
     Indication: ILL-DEFINED DISORDER
     Route: 048
  2. RISPERIDONE [Suspect]
     Route: 048
  3. VALPROATE SODIUM [Concomitant]
     Indication: ILL-DEFINED DISORDER
     Route: 065

REACTIONS (3)
  - BLOOD PRESSURE DECREASED [None]
  - HEART RATE DECREASED [None]
  - LOSS OF CONSCIOUSNESS [None]
